FAERS Safety Report 6601268-3 (Version None)
Quarter: 2010Q1

REPORT INFORMATION
  Report Type: 
  Country: None (occurrence: None)
  Receive Date: 20100224
  Receipt Date: 20100224
  Transmission Date: 20100710
  Serious: Yes (Life-Threatening, Hospitalization)
  Sender: FDA-Public Use
  Company Number: None

PATIENT
  Sex: Female
  Weight: 53.7 kg

DRUGS (1)
  1. DURACT [Suspect]
     Indication: DRUG USE FOR UNKNOWN INDICATION
     Dosage: 100 MG  DAILY ORAL 047
     Route: 048

REACTIONS (5)
  - ABDOMINAL PAIN [None]
  - COAGULOPATHY [None]
  - FATIGUE [None]
  - JAUNDICE [None]
  - MENTAL STATUS CHANGES [None]
